FAERS Safety Report 9099373 (Version 2)
Quarter: 2013Q1

REPORT INFORMATION
  Report Type: Spontaneous
  Country: US (occurrence: US)
  Receive Date: 20130214
  Receipt Date: 20130222
  Transmission Date: 20140127
  Serious: Yes (Other)
  Sender: FDA-Public Use
  Company Number: US-SANOFI-AVENTIS-2013SA010044

PATIENT
  Age: 83 Year
  Sex: Female
  Weight: 77.2 kg

DRUGS (4)
  1. LANTUS SOLOSTAR [Suspect]
     Indication: TYPE 2 DIABETES MELLITUS
     Dosage: DOSE:13 UNIT(S)
     Route: 058
     Dates: start: 2012, end: 20120202
  2. LANTUS SOLOSTAR [Suspect]
     Indication: TYPE 2 DIABETES MELLITUS
     Dosage: INCREASED BY 2UNITS EVERY 3 DAYS DOSE:2 UNIT(S)
     Route: 058
     Dates: start: 20120205
  3. SOLOSTAR [Suspect]
     Indication: TYPE 2 DIABETES MELLITUS
     Dates: start: 2012
  4. AZITHROMYCIN [Suspect]
     Route: 065
     Dates: start: 20130131, end: 20130202

REACTIONS (6)
  - Pneumonia [Unknown]
  - Blood glucose decreased [Recovered/Resolved]
  - Potentiating drug interaction [Recovered/Resolved]
  - Hyperhidrosis [Recovered/Resolved]
  - Palpitations [Recovered/Resolved]
  - Tremor [Recovered/Resolved]
